FAERS Safety Report 4347561-9 (Version None)
Quarter: 2004Q2

REPORT INFORMATION
  Report Type: 
  Country: None (occurrence: None)
  Receive Date: 20040422
  Receipt Date: 20040419
  Transmission Date: 20050107
  Serious: Yes (Hospitalization)
  Sender: FDA-Public Use
  Company Number: 002#4#2004-00077

PATIENT
  Age: 39 Year
  Sex: Female

DRUGS (1)
  1. ROBAXIN [Suspect]

REACTIONS (2)
  - HEPATOCELLULAR DAMAGE [None]
  - MENTAL DISORDER [None]
